FAERS Safety Report 6509052-6 (Version None)
Quarter: 2009Q4

REPORT INFORMATION
  Report Type: 
  Country: None (occurrence: None)
  Receive Date: 20091218
  Receipt Date: 20091218
  Transmission Date: 20100525
  Serious: Yes (Life-Threatening)
  Sender: FDA-Public Use
  Company Number: None

PATIENT
  Age: 77 Year
  Sex: Male
  Weight: 78.1 kg

DRUGS (2)
  1. ASPIRIN [Suspect]
     Indication: ACUTE MYOCARDIAL INFARCTION
     Dosage: 1 TAB EVERY DAY PO
     Route: 048
     Dates: start: 20090918, end: 20090922
  2. HEPARIN SODIUM 1,000 UNITS IN SODIUM CHLORIDE 0.9% [Suspect]
     Indication: ACUTE MYOCARDIAL INFARCTION
     Dosage: 21 ML PER HOUR IV
     Route: 042
     Dates: start: 20090918, end: 20090922

REACTIONS (4)
  - DIARRHOEA [None]
  - FAECES DISCOLOURED [None]
  - GASTRIC HAEMORRHAGE [None]
  - GASTRIC ULCER [None]
